FAERS Safety Report 22370002 (Version 2)
Quarter: 2023Q2

REPORT INFORMATION
  Report Type: Spontaneous
  Country: PT (occurrence: None)
  Receive Date: 20230526
  Receipt Date: 20230620
  Transmission Date: 20230721
  Serious: Yes (Death)
  Sender: FDA-Public Use
  Company Number: PT-ROCHE-3356169

PATIENT

DRUGS (7)
  1. POLATUZUMAB VEDOTIN [Suspect]
     Active Substance: POLATUZUMAB VEDOTIN
     Indication: Product used for unknown indication
     Route: 065
  2. RITUXIMAB [Suspect]
     Active Substance: RITUXIMAB
     Indication: Product used for unknown indication
     Route: 065
  3. BENDAMUSTINE [Suspect]
     Active Substance: BENDAMUSTINE
     Indication: Product used for unknown indication
     Route: 065
  4. CYCLOPHOSPHAMIDE [Suspect]
     Active Substance: CYCLOPHOSPHAMIDE
     Indication: Product used for unknown indication
     Route: 065
  5. DOXORUBICIN [Suspect]
     Active Substance: DOXORUBICIN
     Indication: Product used for unknown indication
     Route: 065
  6. PREDNISONE [Suspect]
     Active Substance: PREDNISONE
     Indication: Product used for unknown indication
     Route: 065
  7. VINCRISTINE [Suspect]
     Active Substance: VINCRISTINE
     Indication: Product used for unknown indication
     Route: 065

REACTIONS (1)
  - Disease progression [Fatal]
